FAERS Safety Report 16668563 (Version 1)
Quarter: 2019Q3

REPORT INFORMATION
  Report Type: Spontaneous
  Country: US (occurrence: US)
  Receive Date: 20190804
  Receipt Date: 20190804
  Transmission Date: 20191004
  Serious: Yes (Disabling)
  Sender: FDA-Public Use
  Company Number: None

PATIENT
  Age: 36 Year
  Sex: Female
  Weight: 63 kg

DRUGS (5)
  1. LUPRON [Suspect]
     Active Substance: LEUPROLIDE ACETATE
     Indication: BREAST CANCER
     Dates: start: 20180901, end: 20190301
  2. MULTIVITAMIN [Concomitant]
     Active Substance: VITAMINS
  3. CALCIUM [Concomitant]
     Active Substance: CALCIUM
  4. PROBIOTIC [Concomitant]
     Active Substance: PROBIOTICS NOS
  5. LUPRON [Suspect]
     Active Substance: LEUPROLIDE ACETATE
     Indication: PROPHYLAXIS
     Dates: start: 20180901, end: 20190301

REACTIONS (11)
  - Headache [None]
  - Memory impairment [None]
  - Eye pain [None]
  - Alopecia [None]
  - Arthralgia [None]
  - Speech disorder [None]
  - Crying [None]
  - Arthritis [None]
  - Pain [None]
  - Osteoporosis [None]
  - Mood swings [None]

NARRATIVE: CASE EVENT DATE: 20180901
